FAERS Safety Report 10559216 (Version 2)
Quarter: 2015Q1

REPORT INFORMATION
  Report Type: Spontaneous
  Country: NL (occurrence: NL)
  Receive Date: 20141103
  Receipt Date: 20150119
  Transmission Date: 20150720
  Serious: Yes (Other)
  Sender: FDA-Public Use
  Company Number: NL-AMGEN-NLDSP2014083340

PATIENT
  Age: 67 Year
  Sex: Male

DRUGS (6)
  1. CAPTOPRIL. [Concomitant]
     Active Substance: CAPTOPRIL
     Indication: CARDIAC DISORDER
     Dosage: 25 MG, TID
     Route: 048
  2. PROLIA [Suspect]
     Active Substance: DENOSUMAB
     Indication: OSTEOPOROSIS
     Dosage: 60 MG, Q6MO
     Route: 058
     Dates: start: 20111102
  3. SILDENAFIL. [Concomitant]
     Active Substance: SILDENAFIL
     Indication: SCLERODERMA
     Dosage: 20 MG, TID
     Route: 048
     Dates: start: 2011
  4. AMBRISENTAN [Concomitant]
     Active Substance: AMBRISENTAN
     Indication: SCLERODERMA
     Dosage: 5 MG, QD
     Route: 048
     Dates: start: 2011
  5. METHOTREXAAT                       /00113801/ [Concomitant]
     Indication: SCLERODERMA
     Dosage: 15 MG, QWK
     Route: 048
     Dates: start: 2011
  6. CALCIUM + VIT D [Concomitant]
     Active Substance: CALCIUM\VITAMIN D
     Indication: OSTEOPOROSIS
     Dosage: 500/800 MG, QD
     Route: 048

REACTIONS (2)
  - Jaw disorder [Unknown]
  - Dysgeusia [Recovering/Resolving]

NARRATIVE: CASE EVENT DATE: 20141108
